FAERS Safety Report 9592389 (Version 1)
Quarter: 2013Q3

REPORT INFORMATION
  Report Type: Spontaneous
  Country: US (occurrence: None)
  Receive Date: 20130930
  Receipt Date: 20130930
  Transmission Date: 20140515
  Serious: Yes (Other)
  Sender: FDA-Public Use
  Company Number: 1000046952

PATIENT
  Age: 32 Year
  Sex: Female

DRUGS (7)
  1. LINZESS (LINACLOTIDE) (145 MICROGRAM CAPSULES) [Suspect]
     Indication: CONSTIPATION
     Dosage: 145 MCG (145MCG, 1 IN 1 D) ORAL
     Route: 048
     Dates: start: 201306
  2. AMITIZA (LUBIPROSTONE) (LUBIPROSTONE) [Concomitant]
  3. ADVAIR (SERETIDE) (SERETIDE) [Concomitant]
  4. CLONAZEPAM (CLONAZEPAM) (CLONAZEPAM) [Concomitant]
  5. BUSPAR (BUSPIRONE HYDROCHLORIDE) (BUSIRONE HYDROCHLORIDE) [Concomitant]
  6. GABAPENTIN (GABAPENTIN) (GABAPENTIN) [Concomitant]
  7. FLOVENT (FLUTICASONE PROIONATE) (FLUTICASONE PROPIONATE) [Concomitant]

REACTIONS (1)
  - Drug ineffective [None]
